FAERS Safety Report 9786510 (Version 1)
Quarter: 2013Q4

REPORT INFORMATION
  Report Type: Spontaneous
  Country: IT (occurrence: None)
  Receive Date: 20131224
  Receipt Date: 20131224
  Transmission Date: 20140711
  Serious: Yes (Hospitalization)
  Sender: FDA-Public Use
  Company Number: IBU20130020

PATIENT
  Age: 76 Year
  Sex: Male

DRUGS (4)
  1. IBUPROFEN [Suspect]
     Indication: ANALGESIC THERAPY
     Route: 048
  2. WARFARIN (WARFARIN) [Concomitant]
  3. ATORVASTATIN [Concomitant]
  4. BISOPROLOL [Concomitant]

REACTIONS (1)
  - Inappropriate antidiuretic hormone secretion [None]
